FAERS Safety Report 7693287-3 (Version None)
Quarter: 2011Q3

REPORT INFORMATION
  Report Type: 
  Country: None (occurrence: None)
  Receive Date: 20110816
  Receipt Date: 20110803
  Transmission Date: 20111222
  Serious: Yes (Other)
  Sender: FDA-Public Use
  Company Number: MC201100357

PATIENT
  Age: 85 Year
  Sex: Female

DRUGS (1)
  1. ANGIOMAX [Suspect]
     Indication: PERCUTANEOUS CORONARY INTERVENTION
     Dosage: INTRAVENOUS
     Route: 042

REACTIONS (3)
  - CORONARY ARTERY THROMBOSIS [None]
  - COAGULATION TIME SHORTENED [None]
  - MYOCARDIAL INFARCTION [None]
